FAERS Safety Report 22314621 (Version 1)
Quarter: 2023Q2

REPORT INFORMATION
  Report Type: Spontaneous
  Country: US (occurrence: None)
  Receive Date: 20230512
  Receipt Date: 20230512
  Transmission Date: 20230721
  Serious: No
  Sender: FDA-Public Use
  Company Number: None

PATIENT

DRUGS (1)
  1. GLUCAGON [Suspect]
     Active Substance: GLUCAGON

REACTIONS (3)
  - Product label issue [None]
  - Product label confusion [None]
  - Incorrect route of product administration [None]
